FAERS Safety Report 17459384 (Version 1)
Quarter: 2020Q1

REPORT INFORMATION
  Report Type: Spontaneous
  Country: US (occurrence: US)
  Receive Date: 20200225
  Receipt Date: 20200225
  Transmission Date: 20200409
  Serious: No
  Sender: FDA-Public Use
  Company Number: US-009507513-2002USA009568

PATIENT
  Sex: Female

DRUGS (3)
  1. REISHI [Concomitant]
     Active Substance: REISHI
  2. KEYTRUDA [Suspect]
     Active Substance: PEMBROLIZUMAB
     Indication: METASTASES TO LUNG
  3. KEYTRUDA [Suspect]
     Active Substance: PEMBROLIZUMAB
     Indication: ENDOMETRIAL CANCER
     Dosage: UNK
     Route: 042
     Dates: end: 201910

REACTIONS (4)
  - Feeding disorder [Not Recovered/Not Resolved]
  - Weight decreased [Not Recovered/Not Resolved]
  - Oesophagitis [Not Recovered/Not Resolved]
  - Rash [Not Recovered/Not Resolved]
